FAERS Safety Report 25768107 (Version 1)
Quarter: 2025Q3

REPORT INFORMATION
  Report Type: Spontaneous
  Country: US (occurrence: US)
  Receive Date: 20250905
  Receipt Date: 20250905
  Transmission Date: 20251020
  Serious: No
  Sender: DOMPE FARMACEUTICI
  Company Number: US-FARMAPROD-202505-1785

PATIENT
  Sex: Female

DRUGS (7)
  1. OXERVATE [Suspect]
     Active Substance: CENEGERMIN-BKBJ
     Indication: Neurotrophic keratopathy
     Route: 047
     Dates: start: 20250501
  2. VITAMINS [Concomitant]
     Active Substance: VITAMINS
  3. FAMOTIDINE [Concomitant]
     Active Substance: FAMOTIDINE
  4. METOPROLOL SUCCINATE [Concomitant]
     Active Substance: METOPROLOL SUCCINATE
  5. ATORVASTATIN CALCIUM [Concomitant]
     Active Substance: ATORVASTATIN CALCIUM
  6. MOXIFLOXACIN [Concomitant]
     Active Substance: MOXIFLOXACIN
  7. TOBRAMYCIN [Concomitant]
     Active Substance: TOBRAMYCIN

REACTIONS (2)
  - Eye disorder [Unknown]
  - Thinking abnormal [Unknown]
